FAERS Safety Report 11174056 (Version 1)
Quarter: 2015Q2

REPORT INFORMATION
  Report Type: Spontaneous
  Country: US (occurrence: US)
  Receive Date: 20150609
  Receipt Date: 20150609
  Transmission Date: 20150821
  Serious: Yes (Hospitalization)
  Sender: FDA-Public Use
  Company Number: US-PFIZER INC-2015187012

PATIENT
  Age: 56 Year
  Sex: Female
  Weight: 71.66 kg

DRUGS (1)
  1. IBRANCE [Suspect]
     Active Substance: PALBOCICLIB
     Indication: BREAST CANCER
     Dosage: 125 MG, (DAY 1-21 Q 28)
     Route: 048
     Dates: start: 20150401

REACTIONS (3)
  - Staphylococcal infection [Unknown]
  - Lethargy [Unknown]
  - Pyrexia [Unknown]
